FAERS Safety Report 4778155-9 (Version None)
Quarter: 2005Q3

REPORT INFORMATION
  Report Type: 
  Country: None (occurrence: None)
  Receive Date: 20050922
  Receipt Date: 20050913
  Transmission Date: 20060218
  Serious: Yes (Other)
  Sender: FDA-Public Use
  Company Number: 2005127130

PATIENT
  Age: 64 Year
  Sex: Female
  Weight: 86.1834 kg

DRUGS (5)
  1. LIPITOR [Suspect]
     Indication: BLOOD CHOLESTEROL INCREASED
     Dosage: 10 MG (10 MG, 1 IN 1 D), ORAL
     Route: 048
     Dates: start: 19990701
  2. DETROL [Suspect]
     Indication: URGE INCONTINENCE
     Dosage: UNKNOWN (UNKNOWN), ORAL
     Route: 048
     Dates: start: 20040101, end: 20040101
  3. ATENOLOL [Concomitant]
  4. LISINOPRIL [Concomitant]
  5. VITAMINS (VITAMINS) [Concomitant]

REACTIONS (7)
  - BLADDER DISORDER [None]
  - CONDITION AGGRAVATED [None]
  - DRUG INEFFECTIVE [None]
  - HYPERTONIC BLADDER [None]
  - INCONTINENCE [None]
  - POST PROCEDURAL COMPLICATION [None]
  - URGE INCONTINENCE [None]
